FAERS Safety Report 5930414-X (Version None)
Quarter: 2008Q4

REPORT INFORMATION
  Report Type: 
  Country: None (occurrence: None)
  Receive Date: 20081022
  Receipt Date: 20081008
  Transmission Date: 20090506
  Serious: Yes (Hospitalization)
  Sender: FDA-Public Use
  Company Number: 8037773

PATIENT
  Age: 47 Year
  Sex: Female
  Weight: 79.54 kg

DRUGS (10)
  1. CIMZIA [Suspect]
     Indication: CROHN'S DISEASE
     Dosage: 400 MG SC
     Route: 058
     Dates: start: 20080601
  2. PREDNISONE [Concomitant]
  3. ATENOLOL [Concomitant]
  4. ARMOUR THYROID [Concomitant]
  5. ESTRADIOL [Concomitant]
  6. OMEPRAZOLE [Concomitant]
  7. VANCOMYCIN HCL [Concomitant]
  8. MULTI-VITAMIN [Concomitant]
  9. LEXAPRO [Concomitant]
  10. LEVAQUIN [Concomitant]

REACTIONS (6)
  - ABSCESS JAW [None]
  - ANAEMIA [None]
  - APPENDICITIS PERFORATED [None]
  - CLOSTRIDIAL INFECTION [None]
  - CONDITION AGGRAVATED [None]
  - PYREXIA [None]
